FAERS Safety Report 19353374 (Version 1)
Quarter: 2021Q2

REPORT INFORMATION
  Report Type: Spontaneous
  Country: GR (occurrence: GR)
  Receive Date: 20210601
  Receipt Date: 20210601
  Transmission Date: 20210717
  Serious: Yes (Hospitalization)
  Sender: FDA-Public Use
  Company Number: GR-AUROBINDO-AUR-APL-2021-021599

PATIENT
  Age: 19 Year
  Sex: Male

DRUGS (11)
  1. OLANZAPINE. [Suspect]
     Active Substance: OLANZAPINE
     Dosage: 20 MILLIGRAM, ONCE A DAY
     Route: 065
  2. ARIPIPRAZOLE. [Suspect]
     Active Substance: ARIPIPRAZOLE
     Indication: MENTAL DISORDER
     Dosage: 80 MILLIGRAM, ONCE A DAY
     Route: 065
  3. HALOPERIDOL. [Suspect]
     Active Substance: HALOPERIDOL
     Indication: MENTAL DISORDER
     Dosage: 60 MILLIGRAM, ONCE A DAY
     Route: 065
  4. FLUVOXAMINE [Suspect]
     Active Substance: FLUVOXAMINE
     Indication: MENTAL DISORDER
     Dosage: 100 MILLIGRAM, ONCE A DAY
     Route: 065
  5. CLONAZEPAM. [Suspect]
     Active Substance: CLONAZEPAM
     Indication: MENTAL DISORDER
     Dosage: 2 MILLIGRAM, ONCE A DAY
     Route: 065
  6. BIPERIDEN [Suspect]
     Active Substance: BIPERIDEN
     Indication: MENTAL DISORDER
     Dosage: 4 MILLIGRAM, ONCE A DAY
     Route: 065
  7. TOPIRAMATE. [Suspect]
     Active Substance: TOPIRAMATE
     Indication: MENTAL DISORDER
     Dosage: 100 MILLIGRAM, ONCE A DAY
     Route: 065
  8. OLANZAPINE. [Suspect]
     Active Substance: OLANZAPINE
     Indication: MENTAL DISORDER
     Dosage: 50 MILLIGRAM, ONCE A DAY
     Route: 065
  9. RISPERIDONE. [Suspect]
     Active Substance: RISPERIDONE
     Indication: MENTAL DISORDER
     Dosage: 20 MILLIGRAM, ONCE A DAY
     Route: 065
  10. BIPERIDEN [Suspect]
     Active Substance: BIPERIDEN
     Dosage: 6 MILLIGRAM, ONCE A DAY
     Route: 065
  11. BIPERIDEN [Suspect]
     Active Substance: BIPERIDEN
     Dosage: 6 MILLIGRAM, ONCE A DAY
     Route: 065

REACTIONS (3)
  - Quality of life decreased [Not Recovered/Not Resolved]
  - Amnesia [Not Recovered/Not Resolved]
  - Dizziness [Not Recovered/Not Resolved]
